FAERS Safety Report 8289959-2 (Version None)
Quarter: 2012Q2

REPORT INFORMATION
  Report Type: 
  Country: None (occurrence: None)
  Receive Date: 20120417
  Receipt Date: 20120404
  Transmission Date: 20120825
  Serious: Yes (Other)
  Sender: FDA-Public Use
  Company Number: JP-ROCHE-796227

PATIENT
  Sex: Female
  Weight: 51 kg

DRUGS (5)
  1. ACTEMRA [Suspect]
     Route: 041
     Dates: start: 20110603, end: 20110701
  2. LOXONIN [Concomitant]
     Indication: RHEUMATOID ARTHRITIS
     Route: 048
  3. ACTEMRA [Suspect]
     Indication: RHEUMATOID ARTHRITIS
     Route: 041
     Dates: start: 20100601, end: 20100824
  4. METHOTREXATE [Concomitant]
     Indication: RHEUMATOID ARTHRITIS
     Route: 048
  5. PREDNISOLONE [Concomitant]
     Indication: RHEUMATOID ARTHRITIS
     Route: 048

REACTIONS (5)
  - MALAISE [None]
  - VIITH NERVE PARALYSIS [None]
  - BLOOD PRESSURE DECREASED [None]
  - URTICARIA [None]
  - ANAPHYLACTIC SHOCK [None]
